FAERS Safety Report 24537971 (Version 1)
Quarter: 2024Q4

REPORT INFORMATION
  Report Type: Spontaneous
  Country: IT (occurrence: IT)
  Receive Date: 20241023
  Receipt Date: 20241023
  Transmission Date: 20250115
  Serious: Yes (Death, Hospitalization, Other)
  Sender: AUROBINDO
  Company Number: IT-MINISAL02-1005567

PATIENT
  Age: 70 Year
  Sex: Female
  Weight: 56 kg

DRUGS (3)
  1. CARBOPLATIN [Suspect]
     Active Substance: CARBOPLATIN
     Indication: Small cell lung cancer
     Dosage: 356.4 MILLIGRAM
     Route: 042
     Dates: start: 20240724, end: 20240724
  2. IMFINZI [Suspect]
     Active Substance: DURVALUMAB
     Indication: Small cell lung cancer
     Dosage: 1500 MILLIGRAM
     Route: 042
     Dates: start: 20240724, end: 20240724
  3. ETOPOSIDE [Suspect]
     Active Substance: ETOPOSIDE
     Indication: Small cell lung cancer
     Dosage: 152 MILLIGRAM (152MG FOR 45 MINUTES INTRAVENOUS ADMINISTRATION ON 07/24/2024152MG FOR 45 MINUTES INT
     Route: 042
     Dates: start: 20240724, end: 20240726

REACTIONS (5)
  - Polyneuropathy [Fatal]
  - Paraesthesia [Fatal]
  - Aphonia [Fatal]
  - Dysphagia [Fatal]
  - Asthenia [Fatal]
